FAERS Safety Report 21519150 (Version 3)
Quarter: 2024Q3

REPORT INFORMATION
  Report Type: Report from Study
  Country: US (occurrence: US)
  Receive Date: 20221028
  Receipt Date: 20240715
  Transmission Date: 20241017
  Serious: Yes (Other)
  Sender: ABBVIE
  Company Number: US-ABBVIE-22K-163-4488953-00

PATIENT
  Sex: Male
  Weight: 135 kg

DRUGS (5)
  1. HUMIRA [Suspect]
     Active Substance: ADALIMUMAB
     Indication: Psoriasis
     Dosage: FORM STRENGTH 40 MG.?CITRATE FREE
     Route: 058
     Dates: start: 202109
  2. HUMIRA [Suspect]
     Active Substance: ADALIMUMAB
     Route: 058
     Dates: start: 20170917
  3. COVID-19 vaccine [Concomitant]
     Indication: COVID-19 immunisation
     Dosage: FIRST DOSE, ONE IN ONCE
     Route: 030
     Dates: start: 202102, end: 202102
  4. COVID-19 vaccine [Concomitant]
     Indication: COVID-19 immunisation
     Dosage: SECOND DOSE, ONE IN ONCE
     Route: 030
     Dates: start: 202105, end: 202105
  5. ASPIRIN [Concomitant]
     Active Substance: ASPIRIN
     Indication: Cardiac disorder

REACTIONS (6)
  - Melanocytic naevus [Recovered/Resolved]
  - Arthralgia [Not Recovered/Not Resolved]
  - Hip surgery [Recovered/Resolved]
  - Spinal operation [Recovered/Resolved]
  - Surgery [Recovered/Resolved]
  - Hip surgery [Recovered/Resolved]

NARRATIVE: CASE EVENT DATE: 20200101
